FAERS Safety Report 6143018-3 (Version None)
Quarter: 2009Q2

REPORT INFORMATION
  Report Type: 
  Country: None (occurrence: None)
  Receive Date: 20090401
  Receipt Date: 20090324
  Transmission Date: 20091009
  Serious: Yes (Other)
  Sender: FDA-Public Use
  Company Number: CHPA2009US07709

PATIENT
  Age: 25 Year
  Sex: Male
  Weight: 81.6 kg

DRUGS (1)
  1. EX-LAX MAD STR LAX PILLS SENNA (NCH) (SENNA GLYCOSIDES (CA SALTS OF PU [Suspect]
     Indication: CONSTIPATION
     Dosage: 25 MG, ONCE/SIGNLE, ORAL
     Route: 048
     Dates: start: 20090322, end: 20090322

REACTIONS (4)
  - MALAISE [None]
  - NAUSEA [None]
  - VOMITING [None]
  - WEIGHT DECREASED [None]
